FAERS Safety Report 14075108 (Version 2)
Quarter: 2017Q4

REPORT INFORMATION
  Report Type: Report from Study
  Country: DE (occurrence: TR)
  Receive Date: 20171010
  Receipt Date: 20171215
  Transmission Date: 20180321
  Serious: Yes (Hospitalization)
  Sender: FDA-Public Use
  Company Number: DE-ACTELION-A-NJ2017-160755

PATIENT
  Age: 18 Year
  Sex: Male
  Weight: 100 kg

DRUGS (4)
  1. CORDARONE [Concomitant]
     Active Substance: AMIODARONE HYDROCHLORIDE
  2. VENTAVIS [Suspect]
     Active Substance: ILOPROST
     Indication: PULMONARY ARTERIAL HYPERTENSION
     Dosage: UNK, 6 X/DAY
     Route: 055
     Dates: start: 20170809
  3. CERTICAN [Concomitant]
     Active Substance: EVEROLIMUS
     Dosage: UNK
     Dates: start: 20150301
  4. MYCOPHENOLIC ACID. [Concomitant]
     Active Substance: MYCOPHENOLIC ACID

REACTIONS (5)
  - Vomiting [Recovering/Resolving]
  - Liver function test increased [Recovering/Resolving]
  - Nausea [Recovering/Resolving]
  - Aspartate aminotransferase increased [Recovering/Resolving]
  - Alanine aminotransferase increased [Recovering/Resolving]

NARRATIVE: CASE EVENT DATE: 20170926
